FAERS Safety Report 17653607 (Version 2)
Quarter: 2020Q2

REPORT INFORMATION
  Report Type: Report from Study
  Country: US (occurrence: US)
  Receive Date: 20200410
  Receipt Date: 20200526
  Transmission Date: 20200713
  Serious: No
  Sender: FDA-Public Use
  Company Number: US-SA-2020SA088059

PATIENT
  Age: 77 Year
  Sex: Male

DRUGS (1)
  1. DUPILUMAB [Suspect]
     Active Substance: DUPILUMAB
     Indication: NASAL POLYPS
     Dosage: 300 MG, QOW

REACTIONS (4)
  - Fatigue [Unknown]
  - Sinus disorder [Unknown]
  - Therapy interrupted [Unknown]
  - Paranasal sinus inflammation [Unknown]

NARRATIVE: CASE EVENT DATE: 20200326
